FAERS Safety Report 23781828 (Version 1)
Quarter: 2024Q2

REPORT INFORMATION
  Report Type: Spontaneous
  Country: US (occurrence: US)
  Receive Date: 20240425
  Receipt Date: 20240425
  Transmission Date: 20240716
  Serious: No
  Sender: FDA-Public Use
  Company Number: US-CIPLA LTD.-2023US03398

PATIENT

DRUGS (4)
  1. ALBUTEROL [Suspect]
     Active Substance: ALBUTEROL
     Indication: Asthma
     Dosage: UNK UNK, PRN (1 INHALER, AS NEEDED)
     Dates: start: 2023
  2. ALBUTEROL [Suspect]
     Active Substance: ALBUTEROL
     Dosage: UNK UNK, PRN (2 INHALER, AS NEEDED)
     Dates: start: 2023
  3. ALBUTEROL [Suspect]
     Active Substance: ALBUTEROL
     Dosage: UNK UNK, PRN (INHALER 3, AS NEEDED)
     Dates: start: 2023
  4. ALBUTEROL [Suspect]
     Active Substance: ALBUTEROL
     Dosage: UNK, PRN
     Dates: start: 2023

REACTIONS (5)
  - Product dose omission issue [Unknown]
  - Drug ineffective [Unknown]
  - Device delivery system issue [Unknown]
  - Product cleaning inadequate [Unknown]
  - Incorrect dose administered by device [Unknown]

NARRATIVE: CASE EVENT DATE: 20230101
